FAERS Safety Report 8960459 (Version 1)
Quarter: 2012Q4

REPORT INFORMATION
  Report Type: Spontaneous
  Country: US (occurrence: None)
  Receive Date: 20121211
  Receipt Date: 20121211
  Transmission Date: 20130627
  Serious: Yes (Death, Hospitalization)
  Sender: FDA-Public Use
  Company Number: None

PATIENT
  Age: 80 Year
  Sex: Male
  Weight: 98.6 kg

DRUGS (1)
  1. WARFARIN [Suspect]
     Indication: ATRIAL FIBRILLATION
     Dosage: 5 MG EVERY DAY PO
     Route: 048
     Dates: start: 20110309, end: 20121109

REACTIONS (11)
  - Intracranial tumour haemorrhage [None]
  - International normalised ratio increased [None]
  - Brain oedema [None]
  - Brain midline shift [None]
  - Coagulopathy [None]
  - Depressed level of consciousness [None]
  - Respiratory disorder [None]
  - Agitation [None]
  - Dyspnoea [None]
  - Hypoxia [None]
  - Circulatory collapse [None]
